FAERS Safety Report 11922575 (Version 1)
Quarter: 2016Q1

REPORT INFORMATION
  Report Type: Spontaneous
  Country: US (occurrence: US)
  Receive Date: 20160115
  Receipt Date: 20160115
  Transmission Date: 20160526
  Serious: No
  Sender: FDA-Public Use
  Company Number: US-ELI_LILLY_AND_COMPANY-US201512006633

PATIENT
  Sex: Male

DRUGS (3)
  1. HUMALOG MIX75/25 [Suspect]
     Active Substance: INSULIN LISPRO
     Indication: PRODUCT USED FOR UNKNOWN INDICATION
     Dosage: 20 U, BID
     Route: 065
     Dates: start: 201404
  2. HUMALOG [Concomitant]
     Active Substance: INSULIN LISPRO
  3. SYMLIN [Concomitant]
     Active Substance: PRAMLINTIDE ACETATE

REACTIONS (1)
  - Drug ineffective [Unknown]
